FAERS Safety Report 22743363 (Version 3)
Quarter: 2025Q3

REPORT INFORMATION
  Report Type: Spontaneous
  Country: US (occurrence: US)
  Receive Date: 20230724
  Receipt Date: 20250731
  Transmission Date: 20251020
  Serious: No
  Sender: BIOGEN
  Company Number: US-BIOGEN-2023BI01217331

PATIENT
  Sex: Female

DRUGS (8)
  1. VUMERITY [Suspect]
     Active Substance: DIROXIMEL FUMARATE
     Indication: Multiple sclerosis
     Dosage: STARTING DOSE
     Route: 050
     Dates: start: 20230531, end: 20230606
  2. VUMERITY [Suspect]
     Active Substance: DIROXIMEL FUMARATE
     Dosage: MAINTENANCE DOSE
     Route: 050
     Dates: start: 20230607, end: 20230718
  3. LASIX [Suspect]
     Active Substance: FUROSEMIDE
     Indication: Hypertension
     Route: 050
  4. GABAPENTIN [Concomitant]
     Active Substance: GABAPENTIN
     Route: 050
  5. BACLOFEN [Concomitant]
     Active Substance: BACLOFEN
     Route: 050
  6. AMITRIPTYLINE [Concomitant]
     Active Substance: AMITRIPTYLINE
     Route: 050
  7. DALFAMPRIDINE [Concomitant]
     Active Substance: DALFAMPRIDINE
     Route: 050
  8. NAPROXEN [Concomitant]
     Active Substance: NAPROXEN
     Route: 050

REACTIONS (5)
  - Migraine [Unknown]
  - Hypertension [Recovered/Resolved]
  - Asthenia [Recovered/Resolved]
  - Rash [Unknown]
  - Flushing [Recovered/Resolved]
